FAERS Safety Report 25528722 (Version 1)
Quarter: 2025Q3

REPORT INFORMATION
  Report Type: Report from Study
  Country: BR (occurrence: BR)
  Receive Date: 20250708
  Receipt Date: 20250708
  Transmission Date: 20251021
  Serious: Yes (Hospitalization, Other)
  Sender: JOHNSON AND JOHNSON
  Company Number: BR-JNJFOC-20231121890

PATIENT
  Age: 36 Year
  Sex: Female
  Weight: 42 kg

DRUGS (9)
  1. INFLIXIMAB [Suspect]
     Active Substance: INFLIXIMAB
     Indication: Crohn^s disease
     Route: 041
     Dates: start: 20230208
  2. INFLIXIMAB [Suspect]
     Active Substance: INFLIXIMAB
     Indication: Rheumatoid arthritis
     Route: 041
  3. INFLIXIMAB [Suspect]
     Active Substance: INFLIXIMAB
     Indication: Crohn^s disease
     Route: 041
     Dates: start: 2012, end: 2019
  4. REMICADE [Suspect]
     Active Substance: INFLIXIMAB
     Indication: Rheumatoid arthritis
     Route: 041
     Dates: start: 201203
  5. REMICADE [Suspect]
     Active Substance: INFLIXIMAB
     Indication: Arthritis enteropathic
     Dosage: 2 MONTHLY AMPOULES OF 100MG EACH BOTTLE
     Route: 041
     Dates: start: 2016, end: 2017
  6. REMICADE [Suspect]
     Active Substance: INFLIXIMAB
     Route: 041
     Dates: end: 2019
  7. ADALIMUMAB [Suspect]
     Active Substance: ADALIMUMAB
     Indication: Crohn^s disease
     Route: 065
     Dates: start: 202001, end: 202212
  8. ADALIMUMAB [Suspect]
     Active Substance: ADALIMUMAB
     Indication: Arthritis enteropathic
  9. PREDNISONE [Suspect]
     Active Substance: PREDNISONE
     Indication: Arthritis
     Route: 065

REACTIONS (9)
  - Infection [Recovered/Resolved]
  - Fistula [Unknown]
  - Arthritis enteropathic [Recovering/Resolving]
  - Crohn^s disease [Recovering/Resolving]
  - Anaemia [Unknown]
  - Osteoporosis [Unknown]
  - Hypovitaminosis [Unknown]
  - Drug ineffective [Unknown]
  - Off label use [Unknown]

NARRATIVE: CASE EVENT DATE: 20190101
